FAERS Safety Report 8009855-5 (Version None)
Quarter: 2011Q4

REPORT INFORMATION
  Report Type: 
  Country: None (occurrence: None)
  Receive Date: 20111221
  Receipt Date: 20111205
  Transmission Date: 20120403
  Serious: Yes (Hospitalization, Other)
  Sender: FDA-Public Use
  Company Number: 2011AP002852

PATIENT
  Age: 37 Year
  Sex: Female

DRUGS (8)
  1. INSULIN [Suspect]
     Indication: CARDIOGENIC SHOCK
     Dosage: 30 IU;IVBOL
     Route: 040
  2. TRAMADOL HYDROCHLORIDE [Suspect]
     Indication: PRODUCT USED FOR UNKNOWN INDICATION
  3. LOXAPINE [Suspect]
     Indication: PRODUCT USED FOR UNKNOWN INDICATION
  4. INSULIN [Suspect]
     Indication: CARDIOGENIC SHOCK
     Dosage: IVDRP
     Route: 041
  5. NOREPINEPHRINE BITARTRATE [Suspect]
     Indication: PRODUCT USED FOR UNKNOWN INDICATION
  6. AMLODIPINE BESYLATE [Suspect]
     Indication: PRODUCT USED FOR UNKNOWN INDICATION
  7. CARBAMAZEPINE [Suspect]
     Indication: PRODUCT USED FOR UNKNOWN INDICATION
  8. WARFARIN SODIUM [Suspect]
     Indication: PRODUCT USED FOR UNKNOWN INDICATION

REACTIONS (5)
  - MULTIPLE DRUG OVERDOSE [None]
  - CARDIOGENIC SHOCK [None]
  - HYPOGLYCAEMIA [None]
  - EXTREMITY NECROSIS [None]
  - DISSEMINATED INTRAVASCULAR COAGULATION [None]
